FAERS Safety Report 8175392-0 (Version None)
Quarter: 2012Q1

REPORT INFORMATION
  Report Type: 
  Country: None (occurrence: None)
  Receive Date: 20120229
  Receipt Date: 20120224
  Transmission Date: 20120608
  Serious: Yes (Other)
  Sender: FDA-Public Use
  Company Number: US-PFIZER INC-2012043628

PATIENT
  Sex: Female
  Weight: 89.342 kg

DRUGS (16)
  1. CHANTIX [Suspect]
     Indication: SMOKING CESSATION THERAPY
     Dosage: UNK
     Route: 048
     Dates: start: 20110101, end: 20110101
  2. CHANTIX [Suspect]
     Dosage: UNK
     Route: 048
     Dates: start: 20110101
  3. ZYRTEC [Concomitant]
     Dosage: UNK, 3X/DAY
  4. CHANTIX [Suspect]
     Dosage: 0.5 MG, 1X/DAY
     Dates: start: 20120217, end: 20120201
  5. XANAX [Concomitant]
     Indication: ANXIETY
     Dosage: UNK
  6. ZANTAC [Concomitant]
     Indication: GASTROOESOPHAGEAL REFLUX DISEASE
     Dosage: UNK
  7. ACETAMINOPHEN AND HYDROCODONE BITARTRATE [Concomitant]
     Dosage: 10/500 MG, 4X/DAY
  8. ALLEGRA [Concomitant]
     Dosage: UNK
  9. COREG [Concomitant]
     Indication: HYPERTENSION
     Dosage: UNK
  10. SYNTHROID [Concomitant]
     Dosage: UNK
  11. HYDROCODONE [Concomitant]
     Dosage: UNK
  12. METOCLOPRAMIDE [Concomitant]
     Indication: GASTROOESOPHAGEAL REFLUX DISEASE
     Dosage: UNK, 4X/DAY
  13. CHANTIX [Suspect]
     Dosage: 1 MG, 2X/DAY
     Route: 048
     Dates: start: 20120201
  14. CYMBALTA [Concomitant]
     Indication: DEPRESSION
     Dosage: UNK
  15. TRAZODONE [Concomitant]
     Indication: SLEEP DISORDER
     Dosage: UNK
  16. CRESTOR [Concomitant]
     Indication: BLOOD CHOLESTEROL INCREASED
     Dosage: UNK

REACTIONS (6)
  - ABNORMAL DREAMS [None]
  - ACTIVITIES OF DAILY LIVING IMPAIRED [None]
  - NERVOUSNESS [None]
  - AGITATION [None]
  - ABNORMAL BEHAVIOUR [None]
  - MEMORY IMPAIRMENT [None]
